FAERS Safety Report 9282405 (Version 1)
Quarter: 2013Q2

REPORT INFORMATION
  Report Type: Spontaneous
  Country: GB (occurrence: GB)
  Receive Date: 20130510
  Receipt Date: 20130510
  Transmission Date: 20140414
  Serious: Yes (Other)
  Sender: FDA-Public Use
  Company Number: GB-ASTELLAS-2012EU010600

PATIENT
  Age: 77 Year
  Sex: Male
  Weight: 57 kg

DRUGS (3)
  1. VESICARE [Suspect]
     Dosage: 10 MG, UNKNOWN/D
     Route: 048
     Dates: start: 201208, end: 20121130
  2. STALEVO [Concomitant]
     Indication: PARKINSONISM
     Dosage: UNK
     Route: 048
     Dates: start: 20111221
  3. SINEMET [Concomitant]
     Dosage: UNK
     Route: 048
     Dates: start: 20100901

REACTIONS (4)
  - Memory impairment [Unknown]
  - Headache [Unknown]
  - Back pain [Unknown]
  - Dry mouth [Recovered/Resolved]
